FAERS Safety Report 20434586 (Version 1)
Quarter: 2022Q1

REPORT INFORMATION
  Report Type: Spontaneous
  Country: ES (occurrence: ES)
  Receive Date: 20220206
  Receipt Date: 20220206
  Transmission Date: 20220423
  Serious: Yes (Other)
  Sender: FDA-Public Use
  Company Number: ES-NOVARTISPH-NVSC2022ES021484

PATIENT
  Age: 27 Year
  Sex: Female

DRUGS (3)
  1. TACROLIMUS [Suspect]
     Active Substance: TACROLIMUS
     Indication: Immunosuppression
     Dosage: UNK UNK, UNKNOWN FREQ.
     Route: 065
     Dates: start: 200904
  2. MYCOPHENOLATE MOFETIL [Suspect]
     Active Substance: MYCOPHENOLATE MOFETIL
     Indication: Immunosuppression
     Dosage: UNK UNK, UNKNOWN FREQ.
     Route: 065
     Dates: start: 200904
  3. MYCOPHENOLATE MOFETIL [Suspect]
     Active Substance: MYCOPHENOLATE MOFETIL
     Dosage: 250 MG, EVERY 12 HOURS (LOWERED DOSE)
     Route: 065
     Dates: end: 201612

REACTIONS (13)
  - Polyomavirus viraemia [Recovered/Resolved]
  - Pneumonia [Unknown]
  - Urosepsis [Unknown]
  - Cytomegalovirus infection [Unknown]
  - Transplant rejection [Unknown]
  - Renal impairment [Unknown]
  - Renal failure [Unknown]
  - Neutropenia [Unknown]
  - Toxicity to various agents [Unknown]
  - Genital herpes [Unknown]
  - Viral test positive [Recovered/Resolved]
  - Anogenital warts [Unknown]
  - Urinary tract infection [Unknown]

NARRATIVE: CASE EVENT DATE: 20090401
